FAERS Safety Report 11388957 (Version 1)
Quarter: 2015Q3

REPORT INFORMATION
  Report Type: Spontaneous
  Country: CA (occurrence: CA)
  Receive Date: 20150817
  Receipt Date: 20150817
  Transmission Date: 20151125
  Serious: Yes (Other)
  Sender: FDA-Public Use
  Company Number: CA-PFIZER INC-2015267545

PATIENT
  Age: 69 Year
  Sex: Female

DRUGS (39)
  1. RAMIPRIL. [Concomitant]
     Active Substance: RAMIPRIL
     Dosage: UNK
  2. TERBUTALINE [Concomitant]
     Active Substance: TERBUTALINE
     Dosage: UNK
  3. LACTULOSE. [Suspect]
     Active Substance: LACTULOSE
     Dosage: 3 DF, AS NEEDED
  4. LIBRAX [Suspect]
     Active Substance: CHLORDIAZEPOXIDE HYDROCHLORIDE\CLIDINIUM BROMIDE
     Indication: IRRITABLE BOWEL SYNDROME
     Dosage: 2.5 MG, 3X/DAY
  5. TYLENOL WITH CODEINE NO.3 [Suspect]
     Active Substance: ACETAMINOPHEN\CODEINE PHOSPHATE
     Indication: OESOPHAGEAL SPASM
     Dosage: UNK, AS NEEDED
  6. ACETAMINOPHEN. [Concomitant]
     Active Substance: ACETAMINOPHEN
     Dosage: UNK
  7. PHENYLEPHRINE HCL [Concomitant]
     Active Substance: PHENYLEPHRINE HYDROCHLORIDE
     Dosage: UNK
  8. LACTULOSE. [Suspect]
     Active Substance: LACTULOSE
     Indication: IRRITABLE BOWEL SYNDROME
     Dosage: 2 DF, AS NEEDED
  9. PLANTAGO AFRA [Suspect]
     Active Substance: HERBALS
     Indication: LAXATIVE SUPPORTIVE CARE
     Dosage: 1 DF, 2X/DAY
  10. PLANTAGO AFRA [Suspect]
     Active Substance: HERBALS
     Dosage: 1 DF, 1X/DAY
     Route: 065
  11. CAFFEINE. [Concomitant]
     Active Substance: CAFFEINE
     Dosage: UNK
     Route: 065
  12. CODEINE [Concomitant]
     Active Substance: CODEINE
     Indication: HEADACHE
  13. LACTULOSE. [Suspect]
     Active Substance: LACTULOSE
     Dosage: 2 DF, 1X/DAY
  14. PSYLLIUM HYDROPHILIC MUCILLOID [Suspect]
     Active Substance: PSYLLIUM HUSK
     Indication: IRRITABLE BOWEL SYNDROME
     Dosage: 30 ML, AS NEEDED
  15. CLOPIDOGREL [Concomitant]
     Active Substance: CLOPIDOGREL BISULFATE
     Dosage: UNK
  16. LORATADINE. [Concomitant]
     Active Substance: LORATADINE
     Dosage: UNK
  17. PINAVERIUM BROMIDE [Concomitant]
     Active Substance: PINAVERIUM BROMIDE
     Indication: IRRITABLE BOWEL SYNDROME
     Dosage: 50 MG, 3X/DAY
  18. ACETAMINOPHEN AND CODEINE [Suspect]
     Active Substance: ACETAMINOPHEN\CODEINE PHOSPHATE
     Indication: HEADACHE
     Dosage: UNK, AS NEEDED
  19. CHLORAX [Suspect]
     Active Substance: CHLORDIAZEPOXIDE HYDROCHLORIDE\CLIDINIUM BROMIDE
     Indication: IRRITABLE BOWEL SYNDROME
     Dosage: 1 DF, AS NEEDED
  20. DICETEL [Suspect]
     Active Substance: PINAVERIUM BROMIDE
     Indication: IRRITABLE BOWEL SYNDROME
     Dosage: 50 MG, 3X/DAY
  21. CALCIUM [Concomitant]
     Active Substance: CALCIUM
     Dosage: UNK
  22. ERYTHROMYCIN. [Suspect]
     Active Substance: ERYTHROMYCIN
     Indication: IRRITABLE BOWEL SYNDROME
     Dosage: UNK, AS NEEDED
  23. PHENYTOIN. [Suspect]
     Active Substance: PHENYTOIN
     Indication: GENERALISED TONIC-CLONIC SEIZURE
     Dosage: UNK
  24. APO-AMITRIPTYLINE [Suspect]
     Active Substance: AMITRIPTYLINE HYDROCHLORIDE
     Indication: DEPRESSION
     Dosage: 150 MG, UNK
  25. DOMPERIDONE [Suspect]
     Active Substance: DOMPERIDONE
     Indication: IRRITABLE BOWEL SYNDROME
     Dosage: 30 MG, 4X/DAY
  26. LANSOPRAZOLE. [Concomitant]
     Active Substance: LANSOPRAZOLE
     Dosage: UNK
  27. PINAVERIUM BROMIDE [Concomitant]
     Active Substance: PINAVERIUM BROMIDE
     Indication: DIARRHOEA
  28. SYMBICORT [Concomitant]
     Active Substance: BUDESONIDE\FORMOTEROL FUMARATE DIHYDRATE
     Dosage: UNK
  29. BUTALBITAL [Concomitant]
     Active Substance: BUTALBITAL
     Indication: OESOPHAGEAL SPASM
     Dosage: UNK
     Route: 065
  30. CALCIUM CARBONATE. [Concomitant]
     Active Substance: CALCIUM CARBONATE
     Dosage: UNK
  31. LEVOTHYROXINE. [Concomitant]
     Active Substance: LEVOTHYROXINE
     Dosage: UNK
  32. SALBUTAMOL [Concomitant]
     Active Substance: ALBUTEROL
     Dosage: UNK
  33. AMITRIPTYLINE [Suspect]
     Active Substance: AMITRIPTYLINE
     Indication: DEPRESSION
     Dosage: 200 MG, 1X/DAY
  34. CHLORDIAZEPOXIDE [Suspect]
     Active Substance: CHLORDIAZEPOXIDE
     Indication: IRRITABLE BOWEL SYNDROME
     Dosage: 5 MG, UNK
  35. CLIDINIUM BROMIDE [Suspect]
     Active Substance: CLIDINIUM BROMIDE
     Indication: IRRITABLE BOWEL SYNDROME
     Dosage: 2.5 MG, 3X/DAY
  36. LOPERAMIDE [Suspect]
     Active Substance: LOPERAMIDE
     Indication: IRRITABLE BOWEL SYNDROME
     Dosage: UNK, AS NEEDED
  37. ALGIUM GRIPA CALIENTE [Concomitant]
     Active Substance: ACETAMINOPHEN\PHENYLEPHRINE
     Dosage: UNK
  38. CODEINE [Concomitant]
     Active Substance: CODEINE
     Indication: OESOPHAGEAL SPASM
     Dosage: 1 DF, UNK
  39. VITAMIN D3 [Concomitant]
     Active Substance: CHOLECALCIFEROL
     Dosage: UNK
     Route: 065

REACTIONS (18)
  - Dyspepsia [Unknown]
  - Generalised tonic-clonic seizure [Unknown]
  - Diarrhoea [Unknown]
  - Gastrointestinal motility disorder [Unknown]
  - Incorrect dose administered [Unknown]
  - Emotional disorder [Unknown]
  - Cognitive disorder [Unknown]
  - Anticholinergic syndrome [Unknown]
  - Dizziness [Unknown]
  - Fatigue [Unknown]
  - Confusional state [Unknown]
  - Constipation [Unknown]
  - Dementia [Unknown]
  - Drug withdrawal syndrome [Unknown]
  - Fall [Unknown]
  - Gastrointestinal disorder [Unknown]
  - Drug administration error [Unknown]
  - Electrocardiogram QT prolonged [Unknown]
